FAERS Safety Report 4696879-9 (Version None)
Quarter: 2005Q2

REPORT INFORMATION
  Report Type: 
  Country: None (occurrence: None)
  Receive Date: 20050127
  Receipt Date: 20050127
  Transmission Date: 20051028
  Serious: Yes (Other)
  Sender: FDA-Public Use
  Company Number: None

PATIENT

DRUGS (2)
  1. NIFEDIPINE [Suspect]
     Indication: CORONARY ARTERY DISEASE
     Dosage: 90 MG PO QD
     Route: 048
  2. NIFEDIPINE [Suspect]
     Indication: HYPERTENSION
     Dosage: 90 MG PO QD
     Route: 048

REACTIONS (1)
  - DIZZINESS [None]
